FAERS Safety Report 7266862-8 (Version None)
Quarter: 2011Q1

REPORT INFORMATION
  Report Type: 
  Country: None (occurrence: None)
  Receive Date: 20110201
  Receipt Date: 20110118
  Transmission Date: 20110831
  Serious: Yes (Death, Hospitalization, Other)
  Sender: FDA-Public Use
  Company Number: US-CELGENEUS-163-21880-10071134

PATIENT
  Sex: Male

DRUGS (28)
  1. ROBITUSSIN [Concomitant]
     Indication: COUGH
     Route: 065
  2. CEFTRIAXONE [Concomitant]
     Route: 065
     Dates: start: 20100601
  3. CELEXA [Concomitant]
  4. LOMOTIL [Concomitant]
  5. CHLORASEPTIC [Concomitant]
     Route: 065
  6. LINEZOLID [Concomitant]
     Route: 065
     Dates: start: 20100601
  7. DEBROX OTIC [Concomitant]
     Route: 065
  8. CALCIFEROL [Concomitant]
     Dosage: 50,000 UNITS
     Route: 048
  9. PROSOURCE [Concomitant]
     Route: 048
  10. GUAIFENESIN/CODEINE [Concomitant]
     Indication: COUGH
     Route: 065
  11. REVLIMID [Suspect]
     Route: 048
     Dates: start: 20090401, end: 20090701
  12. NOVOLIN R [Concomitant]
     Route: 065
  13. TYLENOL-500 [Concomitant]
     Route: 065
  14. ALBUTEROL/PRATROPLUM [Concomitant]
     Dosage: 0.83MG/0.17MG
     Route: 055
  15. ALPRAZOLAM [Concomitant]
  16. CYANOJECT [Concomitant]
     Route: 030
  17. IMODIUM [Concomitant]
  18. OCULAR LUBRICANT [Concomitant]
     Route: 065
  19. DUONEB [Concomitant]
     Route: 065
  20. ASPIRIN [Concomitant]
  21. EPOGEN [Concomitant]
     Dosage: 20,000 UNITS
     Route: 048
  22. CEFEPIME [Concomitant]
     Route: 065
     Dates: start: 20100601
  23. REVLIMID [Suspect]
     Indication: MULTIPLE MYELOMA
     Route: 048
     Dates: start: 20090701
  24. RANTIDINE [Concomitant]
     Route: 065
  25. TRAMADOL HCL [Concomitant]
     Indication: PAIN
     Route: 065
  26. LASIX [Concomitant]
     Indication: PLEURAL EFFUSION
     Route: 051
  27. MARINOL [Concomitant]
  28. ARTIFICIAL TEARS [Concomitant]
     Route: 065

REACTIONS (11)
  - MULTIPLE MYELOMA [None]
  - ATRIAL FIBRILLATION [None]
  - DEEP VEIN THROMBOSIS [None]
  - CONFUSIONAL STATE [None]
  - URINARY TRACT INFECTION [None]
  - PNEUMONIA [None]
  - CLOSTRIDIUM DIFFICILE COLITIS [None]
  - RASH [None]
  - IIIRD NERVE PARALYSIS [None]
  - ANAEMIA [None]
  - RENAL IMPAIRMENT [None]
